FAERS Safety Report 16414372 (Version 1)
Quarter: 2019Q2

REPORT INFORMATION
  Report Type: Report from Study
  Country: US (occurrence: US)
  Receive Date: 20190611
  Receipt Date: 20190611
  Transmission Date: 20190711
  Serious: Yes (Other)
  Sender: FDA-Public Use
  Company Number: US-MYLANLABS-2019M1054659

PATIENT
  Age: 14 Month

DRUGS (2)
  1. HEPARIN [Suspect]
     Active Substance: HEPARIN SODIUM
     Indication: DEEP VEIN THROMBOSIS
     Dosage: INITIALLY RECEIVED HEPARIN BOLUS AT AN UNSPECIFIED DOSE
     Route: 050
  2. HEPARIN [Suspect]
     Active Substance: HEPARIN SODIUM
     Dosage: THEN RECEIVED MAINTENANCE HEPARIN INFUSION
     Route: 050

REACTIONS (2)
  - Haemoglobin decreased [Unknown]
  - Catheter site haemorrhage [Unknown]
